FAERS Safety Report 12316950 (Version 1)
Quarter: 2016Q2

REPORT INFORMATION
  Report Type: Spontaneous
  Country: US (occurrence: None)
  Receive Date: 20160428
  Receipt Date: 20160428
  Transmission Date: 20160815
  Serious: Yes (Death, Life-Threatening, Hospitalization)
  Sender: FDA-Public Use
  Company Number: None

PATIENT
  Age: 91 Year
  Sex: Female
  Weight: 65.77 kg

DRUGS (12)
  1. OXYCODONE [Concomitant]
     Active Substance: OXYCODONE
  2. FLORASTAR [Concomitant]
     Active Substance: SACCHAROMYCES CEREVISIAE
  3. VITAMIN D3 [Concomitant]
     Active Substance: CHOLECALCIFEROL
  4. HEALTHSHAKE [Concomitant]
  5. AMOXICILLIN. [Concomitant]
     Active Substance: AMOXICILLIN
  6. COMPAZINE [Suspect]
     Active Substance: PROCHLORPERAZINE MALEATE
     Indication: NAUSEA
     Dates: start: 20151109, end: 20151109
  7. POLYETHYLENE GY 3350 POWDER [Concomitant]
  8. ACETAMINPHEN [Concomitant]
  9. DULOXETINE. [Concomitant]
     Active Substance: DULOXETINE
  10. OMEPRAZOLE. [Concomitant]
     Active Substance: OMEPRAZOLE
  11. METHADONE [Concomitant]
     Active Substance: METHADONE HYDROCHLORIDE
  12. CALCIUM CARB [Concomitant]

REACTIONS (11)
  - Depressed level of consciousness [None]
  - Abdominal pain [None]
  - Dehydration [None]
  - Off label use [None]
  - Drug monitoring procedure incorrectly performed [None]
  - Moaning [None]
  - Sepsis [None]
  - Pyrexia [None]
  - Blood pressure diastolic decreased [None]
  - Escherichia test positive [None]
  - Pneumonia aspiration [None]

NARRATIVE: CASE EVENT DATE: 20151109
